FAERS Safety Report 10993913 (Version 1)
Quarter: 2015Q2

REPORT INFORMATION
  Report Type: Spontaneous
  Country: US (occurrence: None)
  Receive Date: 20150406
  Receipt Date: 20150406
  Transmission Date: 20150821
  Serious: Yes (Other)
  Sender: FDA-Public Use
  Company Number: None

PATIENT
  Age: 20 Year
  Sex: Female

DRUGS (1)
  1. HUMIRA [Suspect]
     Active Substance: ADALIMUMAB
     Indication: PSORIASIS
     Dosage: STRENGTH: 40, DOSE FORM:  INJECTABLE, FREQUENCY:  PSORIASIS START, ROUTE: SUBCUTANEOUS 057
     Route: 058
     Dates: start: 20150302

REACTIONS (2)
  - Pruritus generalised [None]
  - Formication [None]

NARRATIVE: CASE EVENT DATE: 20150402
